FAERS Safety Report 8089341 (Version 3)
Quarter: 2013Q2

REPORT INFORMATION
  Report Type: Spontaneous
  Country: US (occurrence: None)
  Receive Date: 20110808
  Receipt Date: 20130521
  Transmission Date: 20140414
  Serious: Yes (Other)
  Sender: FDA-Public Use
  Company Number: TRP_07872_2011

PATIENT
  Age: 55 Year
  Sex: Male

DRUGS (2)
  1. INTERFERON ALFACON-1 [Suspect]
     Indication: HEPATITIS C
     Dosage: 15 UG QD SUBCUTANEOUS
     Route: 058
     Dates: start: 20101221, end: 20110505
  2. RIBAVIRIN [Suspect]
     Indication: HEPATITIS C
     Dosage: 400 MG BID ORAL
     Route: 048
     Dates: start: 20101221, end: 20110505

REACTIONS (3)
  - VITREOUS FLOATERS [None]
  - CONDITION AGGRAVATED [None]
  - RETINAL TOXICITY [None]
